FAERS Safety Report 9345804 (Version 1)
Quarter: 2013Q2

REPORT INFORMATION
  Report Type: Spontaneous
  Country: FR (occurrence: FR)
  Receive Date: 20130613
  Receipt Date: 20130613
  Transmission Date: 20140414
  Serious: Yes (Other)
  Sender: FDA-Public Use
  Company Number: FR-ABBOTT-13X-056-1101953-00

PATIENT
  Sex: Female

DRUGS (5)
  1. LIPANTHYL [Suspect]
     Indication: HYPERCHOLESTEROLAEMIA
     Route: 048
  2. TAXOTERE [Suspect]
     Indication: BREAST CANCER
     Dates: start: 19990526
  3. TAXOTERE [Suspect]
     Route: 042
     Dates: start: 20090526
  4. TAXOTERE [Suspect]
  5. TAXOTERE [Suspect]

REACTIONS (3)
  - Invasive ductal breast carcinoma [Unknown]
  - Leukopenia [Recovered/Resolved]
  - Neutropenia [Recovered/Resolved]
